FAERS Safety Report 5028371-6 (Version None)
Quarter: 2006Q2

REPORT INFORMATION
  Report Type: 
  Country: None (occurrence: None)
  Receive Date: 20060503
  Receipt Date: 20060226
  Transmission Date: 20061013
  Serious: No
  Sender: FDA-Public Use
  Company Number: FACT0600120

PATIENT
  Age: 44 Year
  Sex: Male

DRUGS (4)
  1. FACTIVE [Suspect]
     Indication: RESPIRATORY TRACT INFECTION BACTERIAL
     Dosage: 320 MG, QD, ORAL
     Route: 048
     Dates: start: 20060215, end: 20060201
  2. FACTIVE [Suspect]
     Indication: RESPIRATORY TRACT INFECTION BACTERIAL
     Dosage: 320 MG, QD, ORAL
     Route: 048
     Dates: start: 20060209, end: 20060213
  3. MEDROL ACETATE [Suspect]
     Dates: start: 20060209, end: 20060201
  4. PREDNISONE TAB [Suspect]
     Dosage: ORAL
     Route: 048
     Dates: start: 20060215

REACTIONS (2)
  - DRUG INEFFECTIVE [None]
  - RASH ERYTHEMATOUS [None]
